FAERS Safety Report 23803179 (Version 2)
Quarter: 2024Q2

REPORT INFORMATION
  Report Type: Spontaneous
  Country: US (occurrence: US)
  Receive Date: 20240501
  Receipt Date: 20240513
  Transmission Date: 20240716
  Serious: No
  Sender: FDA-Public Use
  Company Number: US-BAYER-2024A059564

PATIENT
  Age: 28 Year
  Sex: Female
  Weight: 149 kg

DRUGS (1)
  1. MIRENA [Suspect]
     Active Substance: LEVONORGESTREL
     Indication: Intrauterine contraception
     Dosage: 20?G/DAY
     Route: 015
     Dates: start: 202004, end: 20240411

REACTIONS (3)
  - Device dislocation [Recovered/Resolved]
  - Vaginal haemorrhage [None]
  - Pelvic pain [None]
